FAERS Safety Report 8220774-1 (Version None)
Quarter: 2012Q1

REPORT INFORMATION
  Report Type: 
  Country: None (occurrence: None)
  Receive Date: 20120320
  Receipt Date: 20120201
  Transmission Date: 20120608
  Serious: Yes (Other)
  Sender: FDA-Public Use
  Company Number: US-RB-034743-12

PATIENT
  Age: 25 Year
  Sex: Male

DRUGS (3)
  1. MUCINEX DM [Suspect]
     Indication: RESPIRATORY TRACT CONGESTION
     Dosage: ON 28-JAN-2012.
     Route: 048
  2. MUCINEX DM [Suspect]
     Indication: RHINORRHOEA
     Dosage: ON 28-JAN-2012.
     Route: 048
  3. METHADONE HCL [Concomitant]
     Indication: DEPENDENCE
     Dosage: TAKEN DAILY

REACTIONS (10)
  - FEELING OF BODY TEMPERATURE CHANGE [None]
  - CONVERSION DISORDER [None]
  - DIZZINESS [None]
  - PYREXIA [None]
  - PARAESTHESIA [None]
  - INSOMNIA [None]
  - MYDRIASIS [None]
  - DELUSION [None]
  - FEELING ABNORMAL [None]
  - DISORIENTATION [None]
